FAERS Safety Report 11057122 (Version 2)
Quarter: 2015Q2

REPORT INFORMATION
  Report Type: Spontaneous
  Country: US (occurrence: US)
  Receive Date: 20150422
  Receipt Date: 20150501
  Transmission Date: 20150821
  Serious: No
  Sender: FDA-Public Use
  Company Number: US-PFIZER INC-2015130601

PATIENT
  Age: 30 Year
  Sex: Male

DRUGS (1)
  1. GABAPENTIN. [Suspect]
     Active Substance: GABAPENTIN
     Indication: CUTANEOUS LUPUS ERYTHEMATOSUS
     Dosage: 300 MG, 2X/DAY
     Dates: end: 201412

REACTIONS (1)
  - Drug ineffective for unapproved indication [Unknown]
